FAERS Safety Report 7263059-2 (Version None)
Quarter: 2011Q1

REPORT INFORMATION
  Report Type: 
  Country: None (occurrence: None)
  Receive Date: 20110130
  Receipt Date: 20101001
  Transmission Date: 20110831
  Serious: No
  Sender: FDA-Public Use
  Company Number: US-ABBOTT-10P-163-0675434-00

PATIENT
  Age: 28 Year
  Sex: Male

DRUGS (3)
  1. PROZAC [Concomitant]
     Indication: OBSESSIVE-COMPULSIVE DISORDER
  2. HUMIRA [Suspect]
     Indication: ANKYLOSING SPONDYLITIS
     Dates: start: 20100903
  3. VYVANSE [Concomitant]
     Indication: ATTENTION DEFICIT/HYPERACTIVITY DISORDER

REACTIONS (4)
  - FEELING ABNORMAL [None]
  - LETHARGY [None]
  - DRUG INEFFECTIVE [None]
  - BACK PAIN [None]
